FAERS Safety Report 5903773-1 (Version None)
Quarter: 2008Q3

REPORT INFORMATION
  Report Type: 
  Country: None (occurrence: None)
  Receive Date: 20080930
  Receipt Date: 20080919
  Transmission Date: 20090109
  Serious: Yes (Hospitalization)
  Sender: FDA-Public Use
  Company Number: US-ELI_LILLY_AND_COMPANY-US200809004510

PATIENT
  Age: 62 Year
  Sex: Male

DRUGS (11)
  1. BYETTA [Suspect]
     Indication: TYPE 2 DIABETES MELLITUS
     Dosage: 10 UG, 2/D
     Route: 058
  2. GLIMEPIRIDE [Concomitant]
  3. TRICOR [Concomitant]
     Dosage: 145 MG, UNKNOWN
  4. ALTACE [Concomitant]
     Dosage: 10 MG, UNKNOWN
  5. EFFEXOR [Concomitant]
     Dosage: 75 MG, UNKNOWN
  6. SYNTHROID [Concomitant]
  7. TESTIM [Concomitant]
  8. CADUET [Concomitant]
     Dosage: UNK, UNKNOWN
  9. TIZANIDINE HCL [Concomitant]
     Dosage: 4 MG, 3/D
  10. ATENOLOL [Concomitant]
     Dosage: 100 MG, UNKNOWN
  11. VITAMIN D [Concomitant]

REACTIONS (1)
  - PANCREATITIS [None]
